FAERS Safety Report 13903021 (Version 1)
Quarter: 2017Q3

REPORT INFORMATION
  Report Type: Report from Study
  Country: US (occurrence: US)
  Receive Date: 20170824
  Receipt Date: 20170824
  Transmission Date: 20171127
  Serious: Yes (Other)
  Sender: FDA-Public Use
  Company Number: US-ROCHE-1983223

PATIENT
  Sex: Female
  Weight: 60.38 kg

DRUGS (1)
  1. LUCENTIS [Suspect]
     Active Substance: RANIBIZUMAB
     Indication: PRODUCT USED FOR UNKNOWN INDICATION
     Dosage: ONGOING-YES
     Route: 050
     Dates: start: 201610

REACTIONS (8)
  - Madarosis [Recovered/Resolved]
  - Eye swelling [Recovered/Resolved]
  - Eyelid irritation [Recovered/Resolved]
  - Hypoacusis [Not Recovered/Not Resolved]
  - Pain [Recovered/Resolved]
  - Blindness [Recovered/Resolved]
  - Skin exfoliation [Recovered/Resolved]
  - Accident [Unknown]
